FAERS Safety Report 9174149 (Version 1)
Quarter: 2013Q1

REPORT INFORMATION
  Report Type: Spontaneous
  Country: IT (occurrence: IT)
  Receive Date: 20130320
  Receipt Date: 20130320
  Transmission Date: 20140127
  Serious: Yes (Hospitalization)
  Sender: FDA-Public Use
  Company Number: PHHY2013IT024779

PATIENT
  Sex: Female

DRUGS (6)
  1. ALLOPURINOL [Suspect]
     Indication: HYPERURICAEMIA
     Dosage: 300 MG, DAILY
     Route: 048
     Dates: start: 20000101, end: 20130227
  2. EUTIROX [Interacting]
     Indication: HYPOTHYROIDISM
     Dosage: 100 UG, DAILY
     Route: 048
     Dates: start: 19800101, end: 20130227
  3. COUMADIN [Interacting]
     Indication: CARDIAC VALVE PROSTHESIS USER
     Dosage: 0.5 DF, DAILY
     Route: 048
     Dates: start: 20000101, end: 20130227
  4. FUROSEMIDE [Concomitant]
  5. BISOPROLOL [Concomitant]
  6. CANRENONE [Concomitant]

REACTIONS (2)
  - Rectal haemorrhage [Unknown]
  - Skin ulcer haemorrhage [Unknown]
